FAERS Safety Report 20244189 (Version 1)
Quarter: 2021Q4

REPORT INFORMATION
  Report Type: Other
  Country: None (occurrence: PT)
  Receive Date: 20211229
  Receipt Date: 20211229
  Transmission Date: 20220303
  Serious: Yes (Hospitalization)
  Sender: FDA-Public Use
  Company Number: PT-Caplin Steriles Limited-2123444

PATIENT
  Age: 73 Year
  Sex: Female

DRUGS (2)
  1. ROPIVACAINE HYDROCHLORIDE [Suspect]
     Active Substance: ROPIVACAINE HYDROCHLORIDE
     Indication: Pain management
     Route: 008
  2. PIPERACILLIN SODIUM\TAZOBACTAM SODIUM [Concomitant]
     Active Substance: PIPERACILLIN SODIUM\TAZOBACTAM SODIUM
     Route: 065

REACTIONS (5)
  - Neuroleptic malignant syndrome [Recovering/Resolving]
  - Toxicity to various agents [Recovering/Resolving]
  - Abdominal pain [None]
  - CSF protein increased [None]
  - Sepsis [None]
